FAERS Safety Report 8481266-8 (Version None)
Quarter: 2012Q2

REPORT INFORMATION
  Report Type: 
  Country: None (occurrence: None)
  Receive Date: 20120622
  Receipt Date: 20110510
  Transmission Date: 20120825
  Serious: Yes (Other)
  Sender: FDA-Public Use
  Company Number: GB-024953

PATIENT
  Sex: Male

DRUGS (1)
  1. BUSULFAN [Suspect]
     Indication: STEM CELL TRANSPLANT

REACTIONS (1)
  - ADENOVIRUS INFECTION [None]
